FAERS Safety Report 6828564-9 (Version None)
Quarter: 2010Q3

REPORT INFORMATION
  Report Type: 
  Country: None (occurrence: None)
  Receive Date: 20100709
  Receipt Date: 20070213
  Transmission Date: 20110219
  Serious: No
  Sender: FDA-Public Use
  Company Number: US-PFIZER INC-2007012460

PATIENT
  Sex: Female
  Weight: 49.9 kg

DRUGS (5)
  1. CHANTIX [Suspect]
     Indication: SMOKING CESSATION THERAPY
     Route: 048
     Dates: start: 20070131
  2. MOBIC [Concomitant]
     Route: 048
  3. METHOTREXATE [Concomitant]
  4. DARVOCET [Concomitant]
     Route: 048
  5. ZANTAC [Concomitant]
     Route: 048

REACTIONS (2)
  - NERVOUSNESS [None]
  - PARAESTHESIA [None]
